FAERS Safety Report 23897329 (Version 1)
Quarter: 2024Q2

REPORT INFORMATION
  Report Type: Spontaneous
  Country: US (occurrence: US)
  Receive Date: 20240524
  Receipt Date: 20240524
  Transmission Date: 20240715
  Serious: No
  Sender: FDA-Public Use
  Company Number: US-BAYER-2024A070337

PATIENT
  Age: 33 Year
  Sex: Male

DRUGS (1)
  1. JIVI [Suspect]
     Active Substance: DAMOCTOCOG ALFA PEGOL
     Indication: Haemorrhage
     Dosage: INFUSE 3000 UNITS (+/- 10%) DAILY AS NEEDED

REACTIONS (1)
  - Pain [None]

NARRATIVE: CASE EVENT DATE: 20240422
